FAERS Safety Report 5814613-3 (Version None)
Quarter: 2008Q3

REPORT INFORMATION
  Report Type: 
  Country: None (occurrence: None)
  Receive Date: 20080718
  Receipt Date: 20071205
  Transmission Date: 20090109
  Serious: No
  Sender: FDA-Public Use
  Company Number: US-KINGPHARMUSA00001-K200701569

PATIENT

DRUGS (1)
  1. LEVOXYL [Suspect]
     Indication: HYPOTHYROIDISM
     Dosage: .075 MG, QD
     Route: 048

REACTIONS (5)
  - ASTHENIA [None]
  - DEPRESSION [None]
  - FEELING ABNORMAL [None]
  - SLUGGISHNESS [None]
  - WEIGHT INCREASED [None]
